FAERS Safety Report 22140891 (Version 1)
Quarter: 2023Q1

REPORT INFORMATION
  Report Type: Spontaneous
  Country: GB (occurrence: GB)
  Receive Date: 20230327
  Receipt Date: 20230327
  Transmission Date: 20230418
  Serious: Yes (Hospitalization)
  Sender: FDA-Public Use
  Company Number: None

PATIENT
  Sex: Female
  Weight: 60 kg

DRUGS (1)
  1. DEPO-PROVERA [Suspect]
     Active Substance: MEDROXYPROGESTERONE ACETATE
     Indication: Contraception
     Dosage: UNK

REACTIONS (5)
  - Blood iron increased [Not Recovered/Not Resolved]
  - Haemoglobin increased [Unknown]
  - Seizure [Unknown]
  - Lactose intolerance [Not Recovered/Not Resolved]
  - Weight increased [Not Recovered/Not Resolved]
